FAERS Safety Report 8581786 (Version 3)
Quarter: 2012Q4

REPORT INFORMATION
  Report Type: 
  Country: GB (occurrence: GB)
  Receive Date: 20120528
  Receipt Date: 20121001
  Transmission Date: 20130627
  Serious: Yes (Hospitalization)
  Sender: FDA-Public Use
  Company Number: GB-RANBAXY-2012R1-56512

PATIENT
  Age: 67 Year
  Sex: Male

DRUGS (2)
  1. NAPROXEN [Suspect]
     Indication: ARTHRALGIA
     Dosage: Started approximately one month ago (500mg, 2 in 1 D)
     Route: 048
     Dates: end: 20120428
  2. OMEPRAZOLE [Concomitant]
     Indication: PROPHYLAXIS AGAINST GASTROINTESTINAL ULCER
     Dosage: Started approximately one month ago (20mg, 1 in 1 D)
     Route: 048
     Dates: end: 20120428

REACTIONS (1)
  - Rectal haemorrhage [Recovering/Resolving]
